FAERS Safety Report 10189761 (Version 1)
Quarter: 2014Q2

REPORT INFORMATION
  Report Type: Spontaneous
  Country: US (occurrence: None)
  Receive Date: 20140521
  Receipt Date: 20140521
  Transmission Date: 20141212
  Serious: Yes (Life-Threatening)
  Sender: FDA-Public Use
  Company Number: None

PATIENT
  Age: 52 Year
  Sex: Female
  Weight: 98.88 kg

DRUGS (9)
  1. TICAGRELOR [Suspect]
     Indication: PERCUTANEOUS CORONARY INTERVENTION
     Dosage: 2 PILLS ONCE ORAL
     Route: 048
  2. PREDNISONE [Concomitant]
  3. ALBUTEROL/IPRATROPIUM NEBULIZER [Concomitant]
  4. BECLEMETHASONE [Concomitant]
  5. AZITHROMYCIN [Concomitant]
  6. ASPIRIN [Concomitant]
  7. ATORVASTATIN [Concomitant]
  8. ISOSORBIDE DINITITRATE [Concomitant]
  9. LANTUS [Concomitant]

REACTIONS (1)
  - Acute respiratory failure [None]
